FAERS Safety Report 6823077-2 (Version None)
Quarter: 2010Q3

REPORT INFORMATION
  Report Type: 
  Country: None (occurrence: None)
  Receive Date: 20100708
  Receipt Date: 20100702
  Transmission Date: 20110219
  Serious: Yes (Hospitalization, Other)
  Sender: FDA-Public Use
  Company Number: GB-MERCK-1006GBR00051

PATIENT
  Age: 60 Year
  Sex: Male

DRUGS (5)
  1. ZOCOR [Suspect]
     Indication: HYPERLIPIDAEMIA
     Route: 048
     Dates: start: 20070101
  2. GLICLAZIDE [Concomitant]
     Route: 065
     Dates: start: 20070101
  3. RAMIPRIL [Concomitant]
     Route: 065
     Dates: start: 20070101
  4. ASPIRIN [Concomitant]
     Route: 065
     Dates: start: 20070101
  5. ATORVASTATIN [Suspect]
     Indication: BRAIN STEM STROKE
     Route: 065

REACTIONS (5)
  - BLOOD CREATINE PHOSPHOKINASE INCREASED [None]
  - CONDITION AGGRAVATED [None]
  - MUSCULAR WEAKNESS [None]
  - MYALGIA [None]
  - MYASTHENIA GRAVIS [None]
